FAERS Safety Report 5022252-X (Version None)
Quarter: 2006Q2

REPORT INFORMATION
  Report Type: 
  Country: None (occurrence: None)
  Receive Date: 20060609
  Receipt Date: 20060222
  Transmission Date: 20061013
  Serious: Yes (Hospitalization)
  Sender: FDA-Public Use
  Company Number: FR-MERCK-0602FRA00087

PATIENT
  Age: 60 Year
  Sex: Female

DRUGS (3)
  1. ZETIA [Suspect]
     Indication: HYPERCHOLESTEROLAEMIA
     Route: 048
     Dates: start: 20060204, end: 20060209
  2. ZETIA [Suspect]
     Route: 048
     Dates: start: 20060213, end: 20060216
  3. PRAZEPAM [Concomitant]
     Indication: ANXIETY
     Route: 048
     Dates: start: 19960101

REACTIONS (1)
  - PARESIS [None]
